FAERS Safety Report 22038481 (Version 1)
Quarter: 2023Q1

REPORT INFORMATION
  Report Type: Spontaneous
  Country: FR (occurrence: FR)
  Receive Date: 20230227
  Receipt Date: 20230227
  Transmission Date: 20230417
  Serious: Yes (Hospitalization, Other)
  Sender: FDA-Public Use
  Company Number: None

PATIENT

DRUGS (2)
  1. IBUPROFEN [Suspect]
     Active Substance: IBUPROFEN
     Indication: Tonsillitis
     Dosage: 1 DF
     Route: 048
     Dates: start: 202301
  2. AZITHROMYCIN [Concomitant]
     Active Substance: AZITHROMYCIN
     Indication: Product used for unknown indication
     Dosage: UNK

REACTIONS (1)
  - Meningitis aseptic [Recovered/Resolved]

NARRATIVE: CASE EVENT DATE: 20230201
